FAERS Safety Report 11455790 (Version 1)
Quarter: 2015Q3

REPORT INFORMATION
  Report Type: Spontaneous
  Country: CH (occurrence: CH)
  Receive Date: 20150831
  Receipt Date: 20150831
  Transmission Date: 20151125
  Serious: Yes (Life-Threatening, Hospitalization, Other)
  Sender: FDA-Public Use
  Company Number: CH-GLAXOSMITHKLINE-CH2015121631

PATIENT
  Age: 5 Year
  Sex: Female
  Weight: 26 kg

DRUGS (11)
  1. VENTOLIN [Suspect]
     Active Substance: ALBUTEROL SULFATE
     Indication: BRONCHOSPASM
     Route: 055
     Dates: start: 20150721, end: 20150721
  2. MIDAZOLAM [Concomitant]
     Active Substance: MIDAZOLAM\MIDAZOLAM HYDROCHLORIDE
     Indication: ENDOTRACHEAL INTUBATION COMPLICATION
     Route: 041
     Dates: start: 20150720, end: 20150721
  3. DEXAMETHASON [Suspect]
     Active Substance: DEXAMETHASONE
     Indication: ENDOTRACHEAL INTUBATION COMPLICATION
     Route: 040
     Dates: start: 20150721, end: 20150721
  4. ROCURONIUM [Concomitant]
     Active Substance: ROCURONIUM BROMIDE
     Indication: ENDOTRACHEAL INTUBATION COMPLICATION
     Route: 040
     Dates: start: 20150720, end: 20150721
  5. PROPOFOL. [Suspect]
     Active Substance: PROPOFOL
     Route: 040
     Dates: start: 20150720, end: 20150721
  6. SEVOFLURANE. [Concomitant]
     Active Substance: SEVOFLURANE
     Indication: TONSILLECTOMY
     Route: 055
     Dates: start: 20150720, end: 20150720
  7. DICLOFENAC [Concomitant]
     Active Substance: DICLOFENAC
     Indication: PERIOPERATIVE ANALGESIA
     Route: 065
     Dates: start: 20150720
  8. PROPOFOL. [Suspect]
     Active Substance: PROPOFOL
     Indication: ENDOTRACHEAL INTUBATION COMPLICATION
     Route: 041
     Dates: start: 20150720, end: 20150721
  9. ADRENALIN [Suspect]
     Active Substance: EPINEPHRINE
     Indication: ENDOTRACHEAL INTUBATION COMPLICATION
     Route: 041
  10. FENTANYL. [Concomitant]
     Active Substance: FENTANYL
     Indication: ENDOTRACHEAL INTUBATION COMPLICATION
     Route: 041
     Dates: start: 20150720, end: 20150722
  11. PARACETAMOL [Concomitant]
     Active Substance: ACETAMINOPHEN
     Indication: PERIOPERATIVE ANALGESIA
     Route: 042
     Dates: start: 20150720

REACTIONS (10)
  - Blood pressure decreased [Recovered/Resolved]
  - Tachycardia [Recovered/Resolved]
  - Blood lactate dehydrogenase increased [Unknown]
  - Lactic acidosis [Recovered/Resolved]
  - Electrocardiogram ST segment depression [Recovered/Resolved]
  - Blood creatine phosphokinase increased [Recovered/Resolved]
  - Hyperglycaemia [Recovered/Resolved]
  - Hypokalaemia [Recovered/Resolved]
  - Myocardial necrosis marker increased [Recovered/Resolved]
  - Dyslipidaemia [Unknown]

NARRATIVE: CASE EVENT DATE: 20150721
